FAERS Safety Report 18993562 (Version 1)
Quarter: 2021Q1

REPORT INFORMATION
  Report Type: Spontaneous
  Country: JP (occurrence: JP)
  Receive Date: 20210310
  Receipt Date: 20210310
  Transmission Date: 20210420
  Serious: Yes (Other)
  Sender: FDA-Public Use
  Company Number: JP-SA-2021SA078332

PATIENT
  Age: 58 Year
  Sex: Female

DRUGS (3)
  1. INSULIN ASPART [Concomitant]
     Active Substance: INSULIN ASPART
     Indication: TYPE 1 DIABETES MELLITUS
     Dosage: 15 UNITS IN THE MORNING, 14 UNITS AT NOON, AND 14 UNITS IN THE EVENING
     Route: 065
  2. LANTUS SOLOSTAR [Suspect]
     Active Substance: INSULIN GLARGINE
     Indication: TYPE 1 DIABETES MELLITUS
     Dosage: 19 UNITS
     Route: 058
  3. INSULIN ASPART [Concomitant]
     Active Substance: INSULIN ASPART
     Dosage: TEMPORARILY REDUCED
     Route: 065

REACTIONS (5)
  - Blood glucose abnormal [Recovering/Resolving]
  - Diabetic ketoacidosis [Unknown]
  - Anti-insulin antibody positive [Unknown]
  - Hyperglycaemia [Unknown]
  - Nausea [Unknown]
